FAERS Safety Report 16812369 (Version 1)
Quarter: 2019Q3

REPORT INFORMATION
  Report Type: Spontaneous
  Country: DE (occurrence: DE)
  Receive Date: 20190916
  Receipt Date: 20190916
  Transmission Date: 20191005
  Serious: Yes (Other)
  Sender: FDA-Public Use
  Company Number: DE-MYLANLABS-2019M1086026

PATIENT
  Sex: Male

DRUGS (18)
  1. DOXORUBICIN [Suspect]
     Active Substance: DOXORUBICIN
     Indication: B-CELL LYMPHOMA
     Dosage: 103 MILLIGRAM, QD
     Route: 042
     Dates: start: 20171107
  2. VINCRISTINE [Suspect]
     Active Substance: VINCRISTINE
     Dosage: 3.32 MILLIGRAM
     Route: 042
     Dates: start: 20171208
  3. CYCLOPHOSPHAMIDE. [Suspect]
     Active Substance: CYCLOPHOSPHAMIDE
     Indication: B-CELL LYMPHOMA
     Dosage: 1545 MILLIGRAM, QD (1 IN 1D)
     Route: 042
     Dates: start: 20171107
  4. RITUXIMAB. [Suspect]
     Active Substance: RITUXIMAB
     Indication: PRODUCT USED FOR UNKNOWN INDICATION
     Dosage: 772.5 MILLIGRAM, QD (1 IN 1 D)
     Route: 042
     Dates: start: 20171106
  5. RITUXIMAB. [Suspect]
     Active Substance: RITUXIMAB
     Dosage: 746.25 MILLIGRAM, QD (1 IN 1 D)
     Route: 042
     Dates: start: 20171207
  6. VINCRISTINE [Suspect]
     Active Substance: VINCRISTINE
     Indication: B-CELL LYMPHOMA
     Dosage: 3.42 MILLIGRAM, QD (1 IN 1D)
     Route: 042
     Dates: start: 20171108
  7. SULFAMETHOXAZOLE AND TRIMETHOPRIM [Concomitant]
     Active Substance: SULFAMETHOXAZOLE\TRIMETHOPRIM
     Indication: INFECTION PROPHYLAXIS
     Dosage: 960 MILLIGRAM  (MONDAY WEDNESDAY AND FRIDAY)
     Route: 048
     Dates: start: 20171108
  8. PEGFILGRASTIM [Suspect]
     Active Substance: PEGFILGRASTIM
     Indication: B-CELL LYMPHOMA
     Dosage: 6 MILLIGRAM, QD
     Route: 058
     Dates: start: 20171110
  9. DOXORUBICIN [Suspect]
     Active Substance: DOXORUBICIN
     Dosage: 74.63 MILLIGRAM, QD
     Route: 042
     Dates: start: 20171208
  10. PEGFILGRASTIM [Suspect]
     Active Substance: PEGFILGRASTIM
     Dosage: 6 MILLIGRAM
     Route: 058
     Dates: start: 20171211
  11. ACICLOVIR [Concomitant]
     Active Substance: ACYCLOVIR
     Dosage: 400 MILLIGRAM PER LITRE, QD (1 IN 1D)
     Route: 048
     Dates: start: 20171108
  12. ENOXAPARIN SODIUM. [Concomitant]
     Active Substance: ENOXAPARIN SODIUM
     Indication: THROMBOSIS PROPHYLAXIS
     Dosage: 4 MILLILITER, QD (1 IN 1D)
     Route: 058
     Dates: start: 20171024
  13. PREDNISOLONE. [Suspect]
     Active Substance: PREDNISOLONE
     Indication: B-CELL LYMPHOMA
     Dosage: 100 MILLIGRAM, QD ( 5 DAYS)
     Route: 065
     Dates: start: 20171208, end: 20171212
  14. CYCLOPHOSPHAMIDE. [Suspect]
     Active Substance: CYCLOPHOSPHAMIDE
     Dosage: 1119.38 MILLIGRAM, QD (1 IN 1D)
     Route: 042
     Dates: start: 20171208
  15. ACICLOVIR [Concomitant]
     Active Substance: ACYCLOVIR
     Indication: INFECTION PROPHYLAXIS
     Dosage: 400 MILLIGRAM PER LITRE, QD (1 IN 1D)
     Route: 048
     Dates: start: 20171107
  16. CHOLECALCIFEROL [Concomitant]
     Active Substance: CHOLECALCIFEROL
     Indication: VITAMIN SUPPLEMENTATION
     Dosage: 20000 INTERNATIONAL UNIT, QWK
     Route: 048
     Dates: start: 20171109
  17. CIPROFLOXACIN. [Concomitant]
     Active Substance: CIPROFLOXACIN
     Indication: INFECTION PROPHYLAXIS
     Dosage: 500 MILLIGRAM PER LITRE, QD (1 IN 1D)
     Route: 048
     Dates: start: 20171107
  18. CIPROFLOXACIN. [Concomitant]
     Active Substance: CIPROFLOXACIN
     Dosage: 500 MILLIGRAM PER LITRE, QD (1 IN 1D)
     Route: 048
     Dates: start: 20171108

REACTIONS (3)
  - Embolism [Unknown]
  - Muscular weakness [Unknown]
  - Pulmonary embolism [Unknown]

NARRATIVE: CASE EVENT DATE: 20171218
